FAERS Safety Report 7600928-5 (Version None)
Quarter: 2011Q2

REPORT INFORMATION
  Report Type: 
  Country: None (occurrence: None)
  Receive Date: 20110629
  Receipt Date: 20110616
  Transmission Date: 20111010
  Serious: Yes (Hospitalization)
  Sender: FDA-Public Use
  Company Number: 2011-00619

PATIENT
  Age: 57 Year
  Sex: Male

DRUGS (12)
  1. SIMVASTATIN [Suspect]
     Indication: HYPERCHOLESTEROLAEMIA
     Dosage: 40 MG (40 MG,), ORAL
     Route: 048
     Dates: start: 20060701, end: 20110522
  2. ISOSORBIDE MONONITRATE [Concomitant]
  3. GLYCERYL TRINITRATE (SPRAY (NOT INHALATION)) [Concomitant]
  4. RANEXA [Suspect]
     Indication: ANGINA PECTORIS
     Dosage: 1000 MG (500 MG, 2 IN 1 D), ORAL; 750 MG (375 MG, 2 IN 1 D), ORAL
     Route: 048
     Dates: start: 20110407, end: 20110505
  5. RANEXA [Suspect]
     Indication: ANGINA PECTORIS
     Dosage: 1000 MG (500 MG, 2 IN 1 D), ORAL; 750 MG (375 MG, 2 IN 1 D), ORAL
     Route: 048
     Dates: start: 20110407, end: 20110522
  6. AMLODIPINE [Concomitant]
  7. ASPIRIN [Concomitant]
  8. NAFTIDROFURYL OXALATE (UNKNOWN) [Concomitant]
  9. RAMIPRIL [Concomitant]
  10. CARVEDILOL (UNKNOWN) [Concomitant]
  11. TRIMETHOPRIM [Concomitant]
  12. NICORANDIL (UNKNOWN) [Concomitant]

REACTIONS (2)
  - MALAISE [None]
  - RHABDOMYOLYSIS [None]
